FAERS Safety Report 8443095-0 (Version None)
Quarter: 2012Q2

REPORT INFORMATION
  Report Type: 
  Country: None (occurrence: None)
  Receive Date: 20120615
  Receipt Date: 20120612
  Transmission Date: 20120825
  Serious: Yes (Other)
  Sender: FDA-Public Use
  Company Number: US-PFIZER INC-2012098540

PATIENT
  Sex: Male
  Weight: 64.399 kg

DRUGS (4)
  1. SINGULAIR [Concomitant]
     Dosage: UNK
  2. CADUET [Suspect]
     Indication: HYPERTENSION
     Dosage: UNK, 1X/DAY
     Route: 048
  3. BENADRYL [Concomitant]
     Dosage: UNK
  4. TOVIAZ [Suspect]
     Indication: HYPERTONIC BLADDER
     Dosage: 4 MG, 1X/DAY
     Route: 048
     Dates: start: 20120410, end: 20120401

REACTIONS (3)
  - DRY MOUTH [None]
  - HYPERTONIC BLADDER [None]
  - GLAUCOMA [None]
